FAERS Safety Report 4825690-0 (Version None)
Quarter: 2005Q4

REPORT INFORMATION
  Report Type: 
  Country: None (occurrence: None)
  Receive Date: 20051109
  Receipt Date: 20051027
  Transmission Date: 20060501
  Serious: Yes (Hospitalization)
  Sender: FDA-Public Use
  Company Number: 218747

PATIENT
  Age: 42 Year
  Sex: Female
  Weight: 96.6 kg

DRUGS (14)
  1. AVASTIN [Suspect]
     Indication: COLORECTAL CANCER METASTATIC
     Dosage: 5 MG, Q2W, INTRAVENOUS
     Route: 042
  2. IRINOTECAN HCL [Suspect]
     Indication: COLORECTAL CANCER METASTATIC
     Dosage: 180 MG/M2, Q2W, INTRAVENOUS
     Route: 042
  3. FLUOROURACIL [Suspect]
     Indication: COLORECTAL CANCER METASTATIC
     Dosage: 600 MG/M2, Q2W, INTRAVENOUS
     Route: 042
  4. LEUCOVORIN CALCIUM [Suspect]
     Indication: COLORECTAL CANCER METASTATIC
  5. EFFEXOR [Concomitant]
  6. LORAZEPAM [Concomitant]
  7. COLACE 9DOCUSATE SODIUM) [Concomitant]
  8. HYDRALAZINE HCL [Concomitant]
  9. LOPERAMIDE [Concomitant]
  10. PROCHLORPERAZINE [Concomitant]
  11. DILAUDID (HYDROMORPHONE HYDROCHLORIE) [Concomitant]
  12. HYDROMORPHONE HYDROCHLORIDE (HYDROMORPHONE HYDROCHLORIDE) [Concomitant]
  13. MAXERAN (METOCLOPRAMIDE HYDROCHLORIDE) [Concomitant]
  14. MILES MAGIC (TCN, NYSTATIN, HYDROCORTISONE, W (HYDROCORTISONE, TETRACY [Concomitant]

REACTIONS (3)
  - DEHYDRATION [None]
  - NAUSEA [None]
  - VOMITING [None]
